FAERS Safety Report 15155546 (Version 3)
Quarter: 2018Q3

REPORT INFORMATION
  Report Type: Spontaneous
  Country: US (occurrence: US)
  Receive Date: 20180717
  Receipt Date: 20180828
  Transmission Date: 20181010
  Serious: Yes (Hospitalization, Disabling, Other)
  Sender: FDA-Public Use
  Company Number: US-ASTRAZENECA-2018SE90811

PATIENT
  Age: 11275 Day
  Sex: Male
  Weight: 99.8 kg

DRUGS (15)
  1. METOPROLOL TARTRATE. [Suspect]
     Active Substance: METOPROLOL TARTRATE
     Indication: HEART RATE ABNORMAL
     Route: 048
     Dates: start: 20110826
  2. METOPROLOL TARTRATE. [Suspect]
     Active Substance: METOPROLOL TARTRATE
     Indication: HEART RATE
     Route: 048
     Dates: start: 20110826
  3. SEROQUEL XR [Suspect]
     Active Substance: QUETIAPINE FUMARATE
     Indication: SCHIZOPHRENIA
     Route: 048
     Dates: start: 20180703
  4. METOPROLOL TARTRATE. [Suspect]
     Active Substance: METOPROLOL TARTRATE
     Indication: TACHYCARDIA
     Route: 048
     Dates: start: 20110826
  5. SEROQUEL XR [Suspect]
     Active Substance: QUETIAPINE FUMARATE
     Indication: SCHIZOPHRENIA
     Dosage: HALF TABLET THREE TIMES DAILY, AT SOME POINT HE WAS PRESCRIBED 200 MG AT BED TIME BUT WAS TAKING...
     Route: 048
     Dates: start: 201609
  6. SEROQUEL XR [Suspect]
     Active Substance: QUETIAPINE FUMARATE
     Indication: SCHIZOPHRENIA
     Route: 048
     Dates: start: 20180613, end: 20180707
  7. BUSPAR [Concomitant]
     Active Substance: BUSPIRONE HYDROCHLORIDE
     Indication: ANXIETY
     Dosage: 10.0MG AS REQUIRED
     Route: 048
     Dates: start: 20160201
  8. SEROQUEL XR [Suspect]
     Active Substance: QUETIAPINE FUMARATE
     Indication: SCHIZOPHRENIA
     Route: 048
     Dates: start: 201605
  9. SEROQUEL XR [Suspect]
     Active Substance: QUETIAPINE FUMARATE
     Indication: SCHIZOPHRENIA
     Dosage: 200.0MG UNKNOWN
     Route: 048
     Dates: start: 20180605, end: 20180707
  10. SEROQUEL XR [Suspect]
     Active Substance: QUETIAPINE FUMARATE
     Indication: SCHIZOPHRENIA
     Dosage: 50.0MG UNKNOWN
     Route: 048
  11. ATIVAN [Concomitant]
     Active Substance: LORAZEPAM
     Indication: ANXIETY
     Dosage: 5.0MG AS REQUIRED
     Route: 048
  12. ZYPREXA [Concomitant]
     Active Substance: OLANZAPINE
  13. ZOLOFT [Concomitant]
     Active Substance: SERTRALINE HYDROCHLORIDE
     Indication: DEPRESSION
     Route: 048
     Dates: end: 201706
  14. RISPERDAL [Concomitant]
     Active Substance: RISPERIDONE
  15. SEROQUEL XR [Suspect]
     Active Substance: QUETIAPINE FUMARATE
     Indication: SCHIZOPHRENIA
     Dosage: GENERIC, 1 TO 2 TABLETS PO EVERY MORNING
     Route: 048
     Dates: start: 20180703

REACTIONS (32)
  - Homicidal ideation [Unknown]
  - Drug withdrawal syndrome [Recovered/Resolved]
  - Red blood cell count decreased [Unknown]
  - Feeling abnormal [Unknown]
  - Loss of consciousness [Unknown]
  - Hallucination, auditory [Unknown]
  - Irritability [Unknown]
  - Middle insomnia [Unknown]
  - Aggression [Unknown]
  - Drug level decreased [Unknown]
  - Hypertension [Unknown]
  - Intentional product misuse [Not Recovered/Not Resolved]
  - Product use issue [Unknown]
  - Alcohol withdrawal syndrome [Recovered/Resolved]
  - Psychotic disorder [Unknown]
  - Fatigue [Unknown]
  - Gynaecomastia [Unknown]
  - Monocyte count increased [Unknown]
  - Underdose [Unknown]
  - Alanine aminotransferase increased [Unknown]
  - Progesterone increased [Unknown]
  - Blood pressure increased [Unknown]
  - Haematocrit decreased [Unknown]
  - Heart rate increased [Unknown]
  - Somnolence [Unknown]
  - Aspartate aminotransferase increased [Unknown]
  - Thyroxine free decreased [Unknown]
  - Condition aggravated [Unknown]
  - Seizure [Unknown]
  - Anxiety [Unknown]
  - Poor quality sleep [Unknown]
  - Off label use [Unknown]

NARRATIVE: CASE EVENT DATE: 20170612
